APPROVED DRUG PRODUCT: LODINE
Active Ingredient: ETODOLAC
Strength: 500MG **Federal Register determination that product was not discontinued or withdrawn for safety or effectiveness reasons**
Dosage Form/Route: TABLET;ORAL
Application: N018922 | Product #005
Applicant: WYETH PHARMACEUTICALS INC
Approved: Jun 28, 1996 | RLD: Yes | RS: No | Type: DISCN